FAERS Safety Report 8473509-1 (Version None)
Quarter: 2012Q2

REPORT INFORMATION
  Report Type: 
  Country: None (occurrence: None)
  Receive Date: 20120625
  Receipt Date: 20120625
  Transmission Date: 20120825
  Serious: Yes (Other)
  Sender: FDA-Public Use
  Company Number: None

PATIENT
  Sex: Female

DRUGS (1)
  1. XELODA [Suspect]
     Indication: NEOPLASM MALIGNANT
     Dosage: 1000MG EVERY 12 HOURS PO
     Route: 048
     Dates: start: 20120621, end: 20120621

REACTIONS (2)
  - PHARYNGEAL OEDEMA [None]
  - DYSPHAGIA [None]
